FAERS Safety Report 19163654 (Version 1)
Quarter: 2021Q2

REPORT INFORMATION
  Report Type: Spontaneous
  Country: ES (occurrence: ES)
  Receive Date: 20210421
  Receipt Date: 20210421
  Transmission Date: 20210717
  Serious: Yes (Other)
  Sender: FDA-Public Use
  Company Number: ES-TEVA-2021-ES-1901963

PATIENT
  Age: 66 Year
  Sex: Female

DRUGS (13)
  1. CUBICIN [Interacting]
     Active Substance: DAPTOMYCIN
     Route: 065
  2. DULOXETINE HYDROCHLORIDE. [Concomitant]
     Active Substance: DULOXETINE HYDROCHLORIDE
  3. LORAZEPAM. [Concomitant]
     Active Substance: LORAZEPAM
  4. METAMIZOLE MAGNESIUM [Concomitant]
     Active Substance: METAMIZOLE MAGNESIUM
  5. ZOCOR [Interacting]
     Active Substance: SIMVASTATIN
     Route: 065
  6. ACETAMINOPHEN. [Concomitant]
     Active Substance: ACETAMINOPHEN
  7. POLARAMINE [Concomitant]
     Active Substance: DEXCHLORPHENIRAMINE MALEATE
  8. FOLIC ACID. [Concomitant]
     Active Substance: FOLIC ACID
  9. AMILORIDE HYDROCHLORIDE;HYDROCHLOROTHIAZIDE [Concomitant]
  10. DICLOFENAC [Concomitant]
     Active Substance: DICLOFENAC
  11. ATORVASTATIN CALCIUM. [Suspect]
     Active Substance: ATORVASTATIN CALCIUM
     Route: 065
  12. FERROUS SULFATE. [Concomitant]
     Active Substance: FERROUS SULFATE
  13. TRAMADOL HYDROCHLORIDE. [Concomitant]
     Active Substance: TRAMADOL HYDROCHLORIDE

REACTIONS (2)
  - Drug interaction [Unknown]
  - Myopathy [Unknown]

NARRATIVE: CASE EVENT DATE: 20130627
